FAERS Safety Report 16153196 (Version 1)
Quarter: 2019Q2

REPORT INFORMATION
  Report Type: Spontaneous
  Country: IT (occurrence: IT)
  Receive Date: 20190403
  Receipt Date: 20190403
  Transmission Date: 20190711
  Serious: Yes (Hospitalization)
  Sender: FDA-Public Use
  Company Number: IT-ACCORD-117395

PATIENT
  Age: 50 Year
  Sex: Male

DRUGS (1)
  1. OXALIPLATIN ACCORD [Suspect]
     Active Substance: OXALIPLATIN
     Indication: GASTROINTESTINAL NEOPLASM
     Route: 042

REACTIONS (6)
  - Apraxia [Recovering/Resolving]
  - Atrial fibrillation [Recovering/Resolving]
  - Rash [Recovering/Resolving]
  - Asthenia [Recovering/Resolving]
  - Hypotension [Recovering/Resolving]
  - Off label use [Unknown]

NARRATIVE: CASE EVENT DATE: 20190128
